FAERS Safety Report 5673290-5 (Version None)
Quarter: 2008Q1

REPORT INFORMATION
  Report Type: 
  Country: None (occurrence: None)
  Receive Date: 20080319
  Receipt Date: 20080307
  Transmission Date: 20080703
  Serious: Yes (Hospitalization, Other)
  Sender: FDA-Public Use
  Company Number: US-ELI_LILLY_AND_COMPANY-US200801006607

PATIENT
  Sex: Female

DRUGS (6)
  1. FORTEO [Suspect]
     Indication: BONE DISORDER
     Dosage: UNK, UNK
     Dates: start: 20070101
  2. FORTEO [Suspect]
  3. TOPROL-XL [Concomitant]
  4. PRAVACHOL [Concomitant]
  5. SYNTHROID [Concomitant]
  6. CALCIUM W/VITAMIN D NOS [Concomitant]

REACTIONS (8)
  - ANOREXIA [None]
  - ARTHRALGIA [None]
  - DIARRHOEA [None]
  - FALL [None]
  - HIP ARTHROPLASTY [None]
  - MALAISE [None]
  - NAUSEA [None]
  - SURGERY [None]
